FAERS Safety Report 9379137 (Version 3)
Quarter: 2013Q3

REPORT INFORMATION
  Report Type: Spontaneous
  Country: IT (occurrence: IT)
  Receive Date: 20130702
  Receipt Date: 20130715
  Transmission Date: 20140515
  Serious: Yes (Hospitalization, Other)
  Sender: FDA-Public Use
  Company Number: IT-JNJFOC-20130617488

PATIENT
  Age: 56 Year
  Sex: Female
  Weight: 40 kg

DRUGS (6)
  1. INFLIXIMAB, RECOMBINANT [Suspect]
     Indication: CROHN^S DISEASE
     Route: 042
     Dates: start: 20130524, end: 20130524
  2. ANTIHYPERTENSIVE [Interacting]
     Indication: HYPERTENSION
     Route: 065
  3. MESALAZINE [Concomitant]
     Route: 065
  4. NORVASC [Concomitant]
     Route: 065
  5. DELTACORTENE [Concomitant]
     Route: 065
  6. COTAREG [Concomitant]
     Dosage: 320/25 MG
     Route: 065

REACTIONS (6)
  - Renal failure acute [Recovering/Resolving]
  - Respiratory disorder [Recovering/Resolving]
  - Dehydration [Recovering/Resolving]
  - Diarrhoea [Recovering/Resolving]
  - Hypotension [Recovering/Resolving]
  - Drug interaction [Recovering/Resolving]
